FAERS Safety Report 16844006 (Version 1)
Quarter: 2019Q3

REPORT INFORMATION
  Report Type: Spontaneous
  Country: GB (occurrence: GB)
  Receive Date: 20190924
  Receipt Date: 20190924
  Transmission Date: 20191005
  Serious: Yes (Other)
  Sender: FDA-Public Use
  Company Number: GB-MICRO LABS LIMITED-ML2019-02520

PATIENT
  Age: 33 Year

DRUGS (1)
  1. AMOXICILLIN/CLAVULANIC ACID [Suspect]
     Active Substance: AMOXICILLIN\CLAVULANIC ACID
     Route: 048

REACTIONS (3)
  - Swelling face [Unknown]
  - Pruritus [Unknown]
  - Dyspnoea [Unknown]
